FAERS Safety Report 12832661 (Version 1)
Quarter: 2016Q4

REPORT INFORMATION
  Report Type: Spontaneous
  Country: DE (occurrence: DE)
  Receive Date: 20161010
  Receipt Date: 20161010
  Transmission Date: 20170207
  Serious: Yes (Other)
  Sender: FDA-Public Use
  Company Number: GXKR2016DE004604

PATIENT
  Age: 80 Year
  Sex: Male

DRUGS (2)
  1. METFORMIN [Suspect]
     Active Substance: METFORMIN HYDROCHLORIDE
     Dosage: 425 MG, QD; ^OLD FORMUATION^
     Route: 048
  2. METFORMIN [Suspect]
     Active Substance: METFORMIN HYDROCHLORIDE
     Indication: TYPE 2 DIABETES MELLITUS
     Dosage: 425 MG, QD; ^NEW FORMULATION^
     Route: 048

REACTIONS (4)
  - Ocular discomfort [Unknown]
  - Heart rate irregular [Unknown]
  - Flatulence [Unknown]
  - Head discomfort [Unknown]
